FAERS Safety Report 9833302 (Version 1)
Quarter: 2014Q1

REPORT INFORMATION
  Report Type: Spontaneous
  Country: US (occurrence: US)
  Receive Date: 20140121
  Receipt Date: 20140121
  Transmission Date: 20141002
  Serious: Yes (Other)
  Sender: FDA-Public Use
  Company Number: US-TEVA-457184USA

PATIENT
  Sex: Male

DRUGS (1)
  1. METRONIDAZOLE [Suspect]
     Dates: start: 201305

REACTIONS (8)
  - Haemorrhage [Unknown]
  - Contusion [Unknown]
  - Neck pain [Unknown]
  - Oropharyngeal pain [Unknown]
  - Bone pain [Unknown]
  - Arthralgia [Unknown]
  - Myalgia [Unknown]
  - Muscle tightness [Unknown]
